FAERS Safety Report 5026490-1 (Version None)
Quarter: 2006Q2

REPORT INFORMATION
  Report Type: 
  Country: None (occurrence: None)
  Receive Date: 20060615
  Receipt Date: 20060517
  Transmission Date: 20061013
  Serious: Yes (Hospitalization)
  Sender: FDA-Public Use
  Company Number: 2006AP02289

PATIENT
  Age: 19744 Day
  Sex: Female

DRUGS (12)
  1. IRESSA [Suspect]
     Indication: LUNG ADENOCARCINOMA
     Route: 048
     Dates: start: 20051013, end: 20060430
  2. RINDERON VG [Concomitant]
  3. NIZORAL [Concomitant]
  4. LANDSEN [Concomitant]
     Indication: HYPOAESTHESIA
     Route: 048
     Dates: start: 20050912, end: 20051027
  5. LANDSEN [Concomitant]
     Route: 048
     Dates: start: 20051028
  6. OPALMON [Concomitant]
     Indication: HYPOAESTHESIA
     Route: 048
     Dates: start: 20050912
  7. CYANOCOBALAMIN [Concomitant]
     Indication: HYPOAESTHESIA
     Route: 048
     Dates: start: 20050912
  8. TRYPTANOL [Concomitant]
     Indication: HYPOAESTHESIA
     Route: 048
     Dates: start: 20051028
  9. CARBOPLATIN [Concomitant]
     Dosage: CHEMOTHERAPY WAS SKIPPED ON DAY 15 DUE TO LAB RESULTS
     Dates: start: 20050830
  10. PACLITAXEL [Concomitant]
     Dosage: CHEMOTHERAPY WAS SKIPPED ON DAY 15 DUE TO LAB RESULTS
     Dates: start: 20050830
  11. RADIOTHERAPY [Concomitant]
  12. RADIOTHERAPY [Concomitant]
     Dates: start: 20061005

REACTIONS (5)
  - ACNE [None]
  - HEPATIC FUNCTION ABNORMAL [None]
  - IMPETIGO [None]
  - RASH [None]
  - STAPHYLOCOCCAL INFECTION [None]
